FAERS Safety Report 17074643 (Version 1)
Quarter: 2019Q4

REPORT INFORMATION
  Report Type: Spontaneous
  Country: US (occurrence: US)
  Receive Date: 20191126
  Receipt Date: 20191126
  Transmission Date: 20200122
  Serious: No
  Sender: FDA-Public Use
  Company Number: US-DRREDDYS-USA/USA/19/0116370

PATIENT
  Age: 40 Year
  Sex: Female

DRUGS (3)
  1. MISOPROSTOL. [Concomitant]
     Active Substance: MISOPROSTOL
     Indication: UTERINE CERVIX DILATION PROCEDURE
     Dosage: RECEIVED TOTAL TWO DOSES OF MISOPROSTOL TWICE
  2. TERBUTALINE SULFATE. [Concomitant]
     Active Substance: TERBUTALINE SULFATE
     Indication: EXTERNAL CEPHALIC VERSION
  3. OXYTOCIN. [Suspect]
     Active Substance: OXYTOCIN
     Indication: LABOUR AUGMENTATION

REACTIONS (2)
  - Exposure during pregnancy [Unknown]
  - Uterine tachysystole [Unknown]
